FAERS Safety Report 10071977 (Version 2)
Quarter: 2014Q1

REPORT INFORMATION
  Report Type: Spontaneous
  Country: US (occurrence: None)
  Receive Date: 20140313
  Receipt Date: 20140321
  Transmission Date: 20141002
  Serious: Yes (Other)
  Sender: FDA-Public Use
  Company Number: US-145524

PATIENT
  Age: 35 Year
  Sex: Male
  Weight: 89.4 kg

DRUGS (2)
  1. BOTULISM ANTITOXIN [Suspect]
     Indication: BOTULISM
     Dates: start: 20140227, end: 20140227
  2. IMMUNOGLOBULIN [Concomitant]

REACTIONS (2)
  - Hypersensitivity [None]
  - Infusion related reaction [None]
